FAERS Safety Report 21623347 (Version 2)
Quarter: 2023Q2

REPORT INFORMATION
  Report Type: Spontaneous
  Country: US (occurrence: US)
  Receive Date: 20221121
  Receipt Date: 20230608
  Transmission Date: 20230721
  Serious: Yes (Death, Other)
  Sender: FDA-Public Use
  Company Number: US-PFIZER INC-202201309742

PATIENT
  Age: 77 Year
  Sex: Female
  Weight: 65.59 kg

DRUGS (1)
  1. VYNDAMAX [Suspect]
     Active Substance: TAFAMIDIS
     Indication: Cardiac amyloidosis
     Dosage: 61MG CAPSULE ONCE A DAY AT 4 PM BY MOUTH
     Route: 048
     Dates: start: 2019

REACTIONS (3)
  - Disease progression [Fatal]
  - Cardiac failure [Unknown]
  - Condition aggravated [Unknown]
